FAERS Safety Report 22109708 (Version 1)
Quarter: 2023Q1

REPORT INFORMATION
  Report Type: Spontaneous
  Country: CN (occurrence: CN)
  Receive Date: 20230317
  Receipt Date: 20230317
  Transmission Date: 20230418
  Serious: Yes (Other)
  Sender: FDA-Public Use
  Company Number: CN-002147023-NVSC2023CN057482

PATIENT
  Age: 67 Year
  Sex: Male
  Weight: 95 kg

DRUGS (1)
  1. DEXAMETHASONE\TOBRAMYCIN [Suspect]
     Active Substance: DEXAMETHASONE\TOBRAMYCIN
     Indication: Cataract
     Dosage: 1 DRP, 6QD
     Route: 047
     Dates: start: 20230212, end: 20230221

REACTIONS (2)
  - Corneal opacity [Recovering/Resolving]
  - Corneal epithelium defect [Recovering/Resolving]

NARRATIVE: CASE EVENT DATE: 20230223
